FAERS Safety Report 8444457-8 (Version None)
Quarter: 2012Q2

REPORT INFORMATION
  Report Type: 
  Country: None (occurrence: None)
  Receive Date: 20120618
  Receipt Date: 20120607
  Transmission Date: 20120825
  Serious: Yes (Other)
  Sender: FDA-Public Use
  Company Number: CH-ASTRAZENECA-2012SE38567

PATIENT
  Age: 84 Year
  Sex: Male

DRUGS (13)
  1. BETASERC [Suspect]
     Dates: start: 20120202, end: 20120220
  2. ACETAMINOPHEN [Concomitant]
     Route: 048
     Dates: start: 20120114
  3. ROCEPHIN [Suspect]
     Route: 041
     Dates: start: 20120126, end: 20120203
  4. AMLODIPIN ACTAVIS [Concomitant]
     Route: 048
     Dates: start: 20120123, end: 20120405
  5. ZOLOFT [Concomitant]
     Route: 048
     Dates: start: 20120213, end: 20120309
  6. NEXIUM [Suspect]
     Route: 048
     Dates: start: 20120213, end: 20120301
  7. MYCOSTATIN [Concomitant]
     Route: 048
     Dates: start: 20120215, end: 20120220
  8. HALDOL [Concomitant]
     Route: 048
     Dates: start: 20120216, end: 20120227
  9. FERINJECT [Suspect]
     Route: 030
     Dates: start: 20120213, end: 20120227
  10. CALCIPARINE [Concomitant]
     Route: 058
     Dates: start: 20120114, end: 20120306
  11. ASPIRIN [Concomitant]
     Route: 048
  12. SINGULAIR [Suspect]
     Route: 048
     Dates: start: 20120210, end: 20120217
  13. ESIDRIX [Concomitant]
     Route: 048
     Dates: start: 20120203

REACTIONS (3)
  - CHOLESTATIC LIVER INJURY [None]
  - GAMMA-GLUTAMYLTRANSFERASE INCREASED [None]
  - BLOOD ALKALINE PHOSPHATASE INCREASED [None]
